FAERS Safety Report 6641236-9 (Version None)
Quarter: 2010Q1

REPORT INFORMATION
  Report Type: 
  Country: None (occurrence: None)
  Receive Date: 20100303
  Receipt Date: 20090723
  Transmission Date: 20100710
  Serious: Yes (Other)
  Sender: FDA-Public Use
  Company Number: 646022

PATIENT
  Age: 59 Year
  Sex: Female
  Weight: 56.2 kg

DRUGS (2)
  1. BONIVA [Suspect]
     Indication: OSTEOPENIA
     Dosage: INTRAVENOUS
     Route: 042
     Dates: start: 20090112, end: 20090720
  2. CALTRATE (CALCIUM CARBONATE) [Concomitant]

REACTIONS (7)
  - BURNING SENSATION [None]
  - INJECTION SITE ERYTHEMA [None]
  - INJECTION SITE IRRITATION [None]
  - INJECTION SITE PAIN [None]
  - INJECTION SITE PHLEBITIS [None]
  - INJECTION SITE REACTION [None]
  - PAIN IN EXTREMITY [None]
